FAERS Safety Report 15092939 (Version 2)
Quarter: 2018Q3

REPORT INFORMATION
  Report Type: Report from Study
  Country: JP (occurrence: JP)
  Receive Date: 20180629
  Receipt Date: 20180719
  Transmission Date: 20181010
  Serious: Yes (Death)
  Sender: FDA-Public Use
  Company Number: JP-BEH-2018092291

PATIENT
  Age: 81 Year
  Sex: Male
  Weight: 74.8 kg

DRUGS (6)
  1. HISICEOL [Concomitant]
     Dosage: UNK
     Route: 065
     Dates: start: 20180227, end: 20180228
  2. NICARDIPINE [Concomitant]
     Active Substance: NICARDIPINE
     Route: 065
  3. CHICHINA [Concomitant]
     Dosage: UNK
     Route: 065
     Dates: start: 20180227, end: 20180227
  4. WARFARIN [Suspect]
     Active Substance: WARFARIN
     Indication: ATRIAL FIBRILLATION
     Dosage: 3 MG, UNK
     Route: 048
     Dates: end: 20180227
  5. BERIPLEX P/N [Suspect]
     Active Substance: COAGULATION FACTOR IX HUMAN\COAGULATION FACTOR VII HUMAN\COAGULATION FACTOR X HUMAN\PROTEIN C\PROTEIN S HUMAN\PROTHROMBIN
     Indication: HAEMORRHAGE
     Dosage: 1750 IU, UNK
     Route: 042
     Dates: start: 20180227
  6. TRANEXAMIC ACID. [Concomitant]
     Active Substance: TRANEXAMIC ACID
     Dosage: UNK
     Route: 065
     Dates: start: 20180227, end: 20180227

REACTIONS (1)
  - Cerebral haemorrhage [Fatal]

NARRATIVE: CASE EVENT DATE: 20180228
